FAERS Safety Report 10013569 (Version 1)
Quarter: 2014Q1

REPORT INFORMATION
  Report Type: Spontaneous
  Country: FR (occurrence: FR)
  Receive Date: 20140315
  Receipt Date: 20140315
  Transmission Date: 20141002
  Serious: Yes (Hospitalization)
  Sender: FDA-Public Use
  Company Number: FR-ROCHE-1363494

PATIENT
  Age: 81 Year
  Sex: Male
  Weight: 81 kg

DRUGS (2)
  1. MABTHERA [Suspect]
     Indication: IMMUNOGLOBULIN G4 RELATED SCLEROSING DISEASE
     Dosage: TREATMENT DURATION= 12 DAYS
     Route: 041
     Dates: start: 20131110, end: 20131121
  2. CORTANCYL [Suspect]
     Indication: IMMUNOGLOBULIN G4 RELATED SCLEROSING DISEASE
     Route: 065

REACTIONS (1)
  - Lung disorder [Recovering/Resolving]
